FAERS Safety Report 4396231-X (Version None)
Quarter: 2004Q3

REPORT INFORMATION
  Report Type: 
  Country: None (occurrence: None)
  Receive Date: 20040706
  Receipt Date: 20040614
  Transmission Date: 20050211
  Serious: No
  Sender: FDA-Public Use
  Company Number: B0336006A

PATIENT
  Age: 49 Year
  Sex: Male

DRUGS (11)
  1. RETROVIR [Suspect]
     Indication: HIV INFECTION
     Dates: start: 20020901, end: 20020901
  2. EPIVIR [Suspect]
     Indication: HIV INFECTION
     Dates: start: 20020901, end: 20020901
  3. EFAVIRENZ (EFAVIRENZ) [Suspect]
     Indication: HIV INFECTION
     Dates: start: 20020901, end: 20020901
  4. STEROID (STEROID) [Suspect]
     Indication: IMMUNOSUPPRESSION
     Dates: start: 20020901
  5. METHYLPREDNISOLONE [Suspect]
     Indication: IMMUNOSUPPRESSION
     Dosage: 5 MG/KG
     Dates: start: 20020901, end: 20020901
  6. TACROLIMUS (TACROLIMUS) [Suspect]
     Indication: IMMUNOSUPPRESSION
     Dates: start: 20020901, end: 20020901
  7. AZATHIOPRINE [Suspect]
     Indication: IMMUNOSUPPRESSION
     Dates: start: 20020901, end: 20020901
  8. ISOFLURANE [Concomitant]
  9. FENTANYL [Concomitant]
  10. PANCURONIUM BROMIDE [Concomitant]
  11. DOXORUBICIN HCL [Concomitant]

REACTIONS (16)
  - ASCITES [None]
  - BLOOD LACTIC ACID INCREASED [None]
  - CHOLESTASIS [None]
  - DISEASE RECURRENCE [None]
  - DRUG INTERACTION [None]
  - GRAFT DYSFUNCTION [None]
  - HEPATIC NECROSIS [None]
  - HEPATIC NEOPLASM MALIGNANT [None]
  - HEPATIC STEATOSIS [None]
  - HEPATITIS C [None]
  - LACTIC ACIDOSIS [None]
  - LIVER TRANSPLANT [None]
  - NEUTROPENIA [None]
  - PYREXIA [None]
  - RHABDOMYOLYSIS [None]
  - STAPHYLOCOCCAL INFECTION [None]
